FAERS Safety Report 4986312-1 (Version None)
Quarter: 2006Q2

REPORT INFORMATION
  Report Type: 
  Country: None (occurrence: None)
  Receive Date: 20060428
  Receipt Date: 20060302
  Transmission Date: 20061013
  Serious: Yes (Hospitalization)
  Sender: FDA-Public Use
  Company Number: US-MERCK-0603USA00761

PATIENT
  Age: 56 Year
  Sex: Female
  Weight: 115 kg

DRUGS (20)
  1. VIOXX [Suspect]
     Indication: SHOULDER PAIN
     Route: 048
     Dates: start: 20000501, end: 20020710
  2. VIOXX [Suspect]
     Indication: BACK PAIN
     Route: 048
     Dates: start: 20000501, end: 20020710
  3. CEPHALEXIN [Concomitant]
     Route: 065
  4. HUMULIN [Concomitant]
     Indication: DIABETES MELLITUS
     Route: 065
  5. COZAAR [Concomitant]
     Indication: HYPERTENSION
     Route: 065
     Dates: start: 19990101, end: 20010101
  6. CARDURA [Concomitant]
     Indication: HYPERTENSION
     Route: 065
  7. GLUCOPHAGE [Concomitant]
     Indication: DIABETES MELLITUS
     Route: 065
  8. LASIX [Concomitant]
     Indication: FLUID RETENTION
     Route: 065
     Dates: start: 19850101
  9. LASIX [Concomitant]
     Indication: HYPERTENSION
     Route: 065
     Dates: start: 19850101
  10. ZYRTEC [Concomitant]
     Indication: SEASONAL ALLERGY
     Route: 065
  11. ZYRTEC [Concomitant]
     Indication: SINUS DISORDER
     Route: 065
  12. BAYCOL [Concomitant]
     Indication: HYPERCHOLESTEROLAEMIA
     Route: 065
     Dates: start: 20000101, end: 20010101
  13. BAYCOL [Concomitant]
     Indication: SINUS DISORDER
     Route: 065
     Dates: start: 20000101, end: 20010101
  14. SKELAXIN [Concomitant]
     Indication: PAIN
     Route: 065
     Dates: start: 20000101, end: 20010101
  15. SKELAXIN [Concomitant]
     Route: 065
     Dates: start: 20000701, end: 20010501
  16. HUMALOG [Concomitant]
     Indication: DIABETES MELLITUS
     Route: 065
  17. NOVOPHONE [Concomitant]
     Indication: DIABETES MELLITUS
     Route: 065
  18. LIPITOR [Concomitant]
     Indication: BLOOD CHOLESTEROL INCREASED
     Route: 065
     Dates: start: 20010101, end: 20020101
  19. DARVOCET [Concomitant]
     Indication: NEURALGIA
     Route: 065
     Dates: start: 20010101, end: 20050101
  20. PROCARDIA [Concomitant]
     Indication: CARDIAC DISORDER
     Route: 065
     Dates: start: 20010801, end: 20010901

REACTIONS (11)
  - ARTHRALGIA [None]
  - ASTHENIA [None]
  - CORONARY ARTERY DISEASE [None]
  - DYSPEPSIA [None]
  - DYSPNOEA EXERTIONAL [None]
  - GASTROOESOPHAGEAL REFLUX DISEASE [None]
  - GLAUCOMA [None]
  - MITRAL VALVE INCOMPETENCE [None]
  - MYOCARDIAL INFARCTION [None]
  - PAIN IN EXTREMITY [None]
  - SLEEP APNOEA SYNDROME [None]
